FAERS Safety Report 15814567 (Version 1)
Quarter: 2019Q1

REPORT INFORMATION
  Report Type: Spontaneous
  Country: PT (occurrence: PT)
  Receive Date: 20190111
  Receipt Date: 20190111
  Transmission Date: 20190417
  Serious: Yes (Hospitalization)
  Sender: FDA-Public Use
  Company Number: PT-BAUSCH-BL-2019-000575

PATIENT
  Age: 48 Year
  Sex: Female

DRUGS (5)
  1. MYCOPHENOLATE MOFETIL. [Suspect]
     Active Substance: MYCOPHENOLATE MOFETIL
     Indication: LUNG TRANSPLANT
     Route: 065
  2. EVEROLIMUS. [Concomitant]
     Active Substance: EVEROLIMUS
     Indication: LUNG TRANSPLANT
     Dosage: FORMULATION UNKNOWN
  3. TACROLIMUS. [Suspect]
     Active Substance: TACROLIMUS
     Indication: PRODUCT USE IN UNAPPROVED INDICATION
  4. PREDNISOLONE. [Suspect]
     Active Substance: PREDNISOLONE
     Indication: LUNG TRANSPLANT
     Dosage: FORMULATION UNKNOWN
     Route: 065
  5. TACROLIMUS. [Suspect]
     Active Substance: TACROLIMUS
     Indication: LUNG TRANSPLANT
     Route: 065

REACTIONS (3)
  - Thrombotic microangiopathy [Recovering/Resolving]
  - Renal impairment [Recovering/Resolving]
  - Product use in unapproved indication [Unknown]
